FAERS Safety Report 7314274-0 (Version None)
Quarter: 2011Q1

REPORT INFORMATION
  Report Type: 
  Country: None (occurrence: None)
  Receive Date: 20110217
  Receipt Date: 20110217
  Transmission Date: 20110831
  Serious: No
  Sender: FDA-Public Use
  Company Number: None

PATIENT
  Age: 78 Year
  Sex: Male
  Weight: 59.4 kg

DRUGS (2)
  1. WARFARIN 5MG [Suspect]
     Indication: ATRIAL FIBRILLATION
     Dosage: 5 MG QD PO
     Route: 048
  2. KLOR-CON M20 [Suspect]
     Dosage: 20 MEQ QD PO
     Route: 048

REACTIONS (4)
  - HYPERKALAEMIA [None]
  - RENAL FAILURE ACUTE [None]
  - TOXICITY TO VARIOUS AGENTS [None]
  - DEHYDRATION [None]
